FAERS Safety Report 8924830 (Version 1)
Quarter: 2012Q4

REPORT INFORMATION
  Report Type: 
  Country: US (occurrence: US)
  Receive Date: 20121126
  Receipt Date: 20121126
  Transmission Date: 20130627
  Serious: Yes (Other)
  Sender: FDA-Public Use
  Company Number: US-BAYER-2012-121426

PATIENT
  Age: 25 Year
  Sex: Female
  Weight: 82.09 kg

DRUGS (10)
  1. YAZ [Suspect]
     Indication: CONTRACEPTION
  2. CYCLOBENZAPRINE HYDROCHLORIDE [Concomitant]
     Indication: MUSCLE SPASM
     Dosage: 10 mg, every night
     Route: 048
     Dates: start: 20120510
  3. IBUPROFEN [Concomitant]
     Indication: SHOULDER PAIN
     Dosage: 800 mg, BID
     Route: 048
     Dates: start: 20120510
  4. LORTAB [Concomitant]
     Indication: PAIN
     Dosage: 2.5 - 167 mg/5 ml, PRN
     Route: 048
     Dates: start: 20120514
  5. LORTAB [Concomitant]
     Indication: PAIN
     Dosage: 5 ml, PRN
     Route: 048
     Dates: start: 20120514
  6. COLACE [Concomitant]
     Indication: CONSTIPATION
     Dosage: 50 mg/5 ml, PRN
     Route: 048
     Dates: start: 20120514
  7. COLACE [Concomitant]
     Indication: CONSTIPATION
     Dosage: 5 ml, PRN
     Route: 048
     Dates: start: 20120514
  8. MUCINEX DM [Concomitant]
     Indication: MULTIPLE ALLERGIES
     Dosage: 600 mg - 30 mg, BID
     Route: 048
     Dates: start: 20120522
  9. DOCUSATE [Concomitant]
  10. ACETAMINOPHEN W/HYDROCODONE [Concomitant]

REACTIONS (4)
  - Pelvic venous thrombosis [None]
  - Deep vein thrombosis [None]
  - Pulmonary embolism [None]
  - Thrombophlebitis superficial [None]
